FAERS Safety Report 4848434-5 (Version None)
Quarter: 2005Q4

REPORT INFORMATION
  Report Type: 
  Country: None (occurrence: None)
  Receive Date: 20051208
  Receipt Date: 20051121
  Transmission Date: 20060501
  Serious: Yes (Hospitalization)
  Sender: FDA-Public Use
  Company Number: ES-GLAXOSMITHKLINE-B0401329A

PATIENT
  Age: 4 Year
  Sex: Male

DRUGS (1)
  1. AUGMENTIN '125' [Suspect]
     Indication: PYREXIA
     Dosage: 3.5ML THREE TIMES PER DAY
     Route: 048
     Dates: start: 20051119, end: 20051120

REACTIONS (4)
  - PAIN IN EXTREMITY [None]
  - PURPURA [None]
  - SKIN DISCOLOURATION [None]
  - SKIN SWELLING [None]
